FAERS Safety Report 9850326 (Version 1)
Quarter: 2013Q4

REPORT INFORMATION
  Report Type: Spontaneous
  Country: US (occurrence: None)
  Receive Date: 20131226
  Receipt Date: 20131226
  Transmission Date: 20140711
  Serious: Yes (Other)
  Sender: FDA-Public Use
  Company Number: PHEH2012US014829

PATIENT
  Age: 64 Year
  Sex: Female

DRUGS (11)
  1. DIOVAN (VALSARTAN) [Suspect]
     Indication: HYPERTENSION
     Dosage: 320 MG, DAILY. DURING THE MORNING, ORAL
     Route: 048
  2. COREG (CARVEDILOL) [Concomitant]
  3. CLONIDINE (CLONIDINE) [Concomitant]
  4. FELODIPINE (FELODIPINE) [Concomitant]
  5. FUROSEMIDE (FUROSEMIDE) [Concomitant]
  6. LISINOPRIL (LISINOPRIL) [Concomitant]
  7. IBUPROFEN (IBUPROFEN) [Concomitant]
  8. ADVAIR (FLUTICASONE PROPIONATE, SALMETEROL XINAFOATE) [Concomitant]
  9. LORATADINE (LORATADINE) (LORATADINE) [Concomitant]
  10. PANTOPRAZOLE (PANTOPRAZOLE) [Concomitant]
  11. VICODIN (HYDROCODONE BITARTRATE, PARACETAMOL) [Concomitant]

REACTIONS (1)
  - Blood pressure inadequately controlled [None]
